FAERS Safety Report 11179642 (Version 1)
Quarter: 2015Q2

REPORT INFORMATION
  Report Type: Spontaneous
  Country: GB (occurrence: GB)
  Receive Date: 20150611
  Receipt Date: 20150611
  Transmission Date: 20150821
  Serious: Yes (Hospitalization)
  Sender: FDA-Public Use
  Company Number: GB-ASTRAZENECA-2015SE54938

PATIENT
  Age: 43 Year
  Sex: Female
  Weight: 86 kg

DRUGS (10)
  1. DAPAGLIFLOZIN [Suspect]
     Active Substance: DAPAGLIFLOZIN
     Indication: TYPE 2 DIABETES MELLITUS
     Dosage: 5 MG, UNKNOWN, UNIT 3
     Route: 048
     Dates: start: 20150428, end: 20150523
  2. METFORMIN [Concomitant]
     Active Substance: METFORMIN HYDROCHLORIDE
     Dates: start: 20020106
  3. ZOLPIDEM [Concomitant]
     Active Substance: ZOLPIDEM\ZOLPIDEM TARTRATE
     Dates: start: 20010104
  4. LOSARTAN [Concomitant]
     Active Substance: LOSARTAN
     Dates: start: 20130909
  5. ATORVASTATIN [Concomitant]
     Active Substance: ATORVASTATIN
     Dates: start: 20140913
  6. LANSOPRAZOLE. [Concomitant]
     Active Substance: LANSOPRAZOLE
     Dates: start: 20050301
  7. CENTRUM [Concomitant]
     Active Substance: VITAMINS
     Dates: start: 20150421
  8. BETAMETHASONE [Concomitant]
     Active Substance: BETAMETHASONE
     Dates: start: 20150514
  9. DALTEPARIN [Concomitant]
     Active Substance: DALTEPARIN
     Dates: start: 20150421, end: 20150504
  10. VENLAFAXINE [Concomitant]
     Active Substance: VENLAFAXINE HYDROCHLORIDE
     Dates: start: 20130505

REACTIONS (5)
  - Vomiting [Unknown]
  - Hyperglycaemia [Unknown]
  - Hypophosphataemia [Unknown]
  - Diabetic ketoacidosis [Recovering/Resolving]
  - Abdominal pain [Unknown]

NARRATIVE: CASE EVENT DATE: 20150523
